FAERS Safety Report 7834020-1 (Version None)
Quarter: 2011Q4

REPORT INFORMATION
  Report Type: 
  Country: None (occurrence: None)
  Receive Date: 20111024
  Receipt Date: 20111013
  Transmission Date: 20120403
  Serious: Yes (Other)
  Sender: FDA-Public Use
  Company Number: US-JNJFOC-20111006261

PATIENT
  Age: 7 Year
  Sex: Female

DRUGS (1)
  1. REMICADE [Suspect]
     Indication: CROHN'S DISEASE
     Dosage: HAD 3 INDUCTIONS
     Route: 042
     Dates: start: 20110101

REACTIONS (2)
  - FISTULA [None]
  - POST PROCEDURAL COMPLICATION [None]
